FAERS Safety Report 6672777-6 (Version None)
Quarter: 2010Q2

REPORT INFORMATION
  Report Type: 
  Country: None (occurrence: None)
  Receive Date: 20100406
  Receipt Date: 20100324
  Transmission Date: 20101027
  Serious: Yes (Disabling)
  Sender: FDA-Public Use
  Company Number: 1-22027263

PATIENT
  Sex: Female

DRUGS (2)
  1. METOCLOPRAMIDE   TABLET [Suspect]
     Indication: GASTROINTESTINAL DISORDER
     Dosage: AS PRESCRIBED, ORAL
     Route: 048
     Dates: start: 20030812, end: 20040410
  2. METOCLOPRAMIDE HYDROCHLORIDE [Suspect]
     Indication: GASTROINTESTINAL DISORDER
     Dosage: AS PRESCRIBED, ORAL
     Route: 048
     Dates: start: 20030812, end: 20040410

REACTIONS (6)
  - DEFORMITY [None]
  - EXTRAPYRAMIDAL DISORDER [None]
  - MENTAL DISORDER [None]
  - PAIN [None]
  - PARKINSONISM [None]
  - TARDIVE DYSKINESIA [None]
